FAERS Safety Report 6058382-3 (Version None)
Quarter: 2009Q1

REPORT INFORMATION
  Report Type: 
  Country: None (occurrence: None)
  Receive Date: 20090127
  Receipt Date: 20090122
  Transmission Date: 20090719
  Serious: Yes (Death, Life-Threatening, Hospitalization)
  Sender: FDA-Public Use
  Company Number: 2009SP001680

PATIENT
  Sex: Male

DRUGS (8)
  1. TEMODAL [Suspect]
     Indication: GLIOBLASTOMA
     Dosage: 140 MG; QD;
     Dates: start: 20080601, end: 20080701
  2. TEMODAL [Suspect]
     Indication: GLIOBLASTOMA
     Dosage: 140 MG; QD;
     Dates: start: 20080801
  3. TEMODAL [Suspect]
     Indication: GLIOBLASTOMA
     Dosage: 140 MG; QD;
     Dates: start: 20081015
  4. TEMODAL [Suspect]
     Indication: GLIOBLASTOMA
     Dosage: 140 MG; QD;
     Dates: start: 20081112
  5. RANITIDINE HCL [Concomitant]
  6. TROMBYL [Concomitant]
  7. HERMOLEPSIN RETARD (CARBAMAZEPINE) [Concomitant]
  8. BETAPRED [Concomitant]

REACTIONS (5)
  - FALL [None]
  - MULTI-ORGAN FAILURE [None]
  - OXYGEN SATURATION DECREASED [None]
  - PLATELET COUNT DECREASED [None]
  - PULMONARY SEPSIS [None]
